FAERS Safety Report 5784283-1 (Version None)
Quarter: 2008Q2

REPORT INFORMATION
  Report Type: 
  Country: None (occurrence: None)
  Receive Date: 20080619
  Receipt Date: 20080605
  Transmission Date: 20081010
  Serious: Yes (Hospitalization)
  Sender: FDA-Public Use
  Company Number: S08-JPN-02087-01

PATIENT
  Age: 72 Year
  Sex: Female
  Weight: 47.5 kg

DRUGS (15)
  1. ESCITALOPRAM [Suspect]
     Indication: MAJOR DEPRESSION
     Dosage: 10 MG QD PO
     Route: 048
     Dates: start: 20080328, end: 20080408
  2. ESCITALOPRAM [Suspect]
     Indication: MAJOR DEPRESSION
     Dosage: 20 MG QD PO
     Route: 048
     Dates: start: 20080409, end: 20080520
  3. NORVASC [Concomitant]
  4. GASTER (OMEPRAZOLE) [Concomitant]
  5. DIGOXIN [Concomitant]
  6. PERSANTIN [Concomitant]
  7. MAGMITT (MAGNESIUM) [Concomitant]
  8. PRIMPERAN TAB [Concomitant]
  9. RIZE (CLOTIAZEPAM) [Concomitant]
  10. ROHYPNOL (FLUNITRAZEPAM) [Concomitant]
  11. ALOSENN (SENNA) [Concomitant]
  12. ZOLPIDEM TARTRATE [Concomitant]
  13. CONSTAN (ALPRAZOLAM) [Concomitant]
  14. TOFRANIL [Concomitant]
  15. LAXOBERON (SODIUM PICOSULFATE) [Concomitant]

REACTIONS (21)
  - ABNORMAL BEHAVIOUR [None]
  - ACTIVITIES OF DAILY LIVING IMPAIRED [None]
  - ANOREXIA [None]
  - ANXIETY [None]
  - BLOOD ALKALINE PHOSPHATASE INCREASED [None]
  - BLOOD CHOLESTEROL INCREASED [None]
  - BLOOD CREATININE DECREASED [None]
  - BLOOD GLUCOSE INCREASED [None]
  - CONSTIPATION [None]
  - DEPRESSION [None]
  - DRUG INEFFECTIVE [None]
  - DYSGEUSIA [None]
  - FATIGUE [None]
  - INITIAL INSOMNIA [None]
  - IRRITABILITY [None]
  - MAJOR DEPRESSION [None]
  - MALAISE [None]
  - MOVEMENT DISORDER [None]
  - PROTEIN TOTAL DECREASED [None]
  - PSYCHOMOTOR RETARDATION [None]
  - SUICIDAL IDEATION [None]
